FAERS Safety Report 8616795-7 (Version None)
Quarter: 2012Q3

REPORT INFORMATION
  Report Type: 
  Country: None (occurrence: None)
  Receive Date: 20120823
  Receipt Date: 20120807
  Transmission Date: 20120928
  Serious: No
  Sender: FDA-Public Use
  Company Number: US-009507513-1208USA004106

PATIENT

DRUGS (1)
  1. PROPECIA [Suspect]
     Indication: ALOPECIA
     Dosage: 1 DF, QD
     Route: 048
     Dates: start: 20120201

REACTIONS (2)
  - LETHARGY [None]
  - SEXUAL DYSFUNCTION [None]
